FAERS Safety Report 6179910-3 (Version None)
Quarter: 2009Q2

REPORT INFORMATION
  Report Type: 
  Country: None (occurrence: None)
  Receive Date: 20090501
  Receipt Date: 20090415
  Transmission Date: 20091009
  Serious: Yes (Disabling, Other)
  Sender: FDA-Public Use
  Company Number: 2008AP001209

PATIENT
  Age: 67 Year
  Sex: Female

DRUGS (8)
  1. ZOLPIDEM TARTRATE [Suspect]
     Indication: INSOMNIA
     Dosage: 20 MG; QD; PO
     Route: 048
     Dates: start: 20080425
  2. CLOPIDOGREL SULFATE [Concomitant]
  3. FUROSEMIDE [Concomitant]
  4. ACETYLSALICYLIC ACID [Concomitant]
  5. CITALOPRAM HYDROBROMIDE [Concomitant]
  6. CARVEDILOL [Concomitant]
  7. ZOLPIDEM TARTRATE [Concomitant]
  8. DRUGS FOR FUNCTIONAL GASTROINTEST. DISORDERS [Concomitant]

REACTIONS (13)
  - ABASIA [None]
  - DECREASED APPETITE [None]
  - DRUG INEFFECTIVE [None]
  - FEELING DRUNK [None]
  - HEADACHE [None]
  - INSOMNIA [None]
  - MALAISE [None]
  - MUSCLE SPASMS [None]
  - NIGHTMARE [None]
  - PRODUCT SUBSTITUTION ISSUE [None]
  - THIRST [None]
  - TRANCE [None]
  - VISION BLURRED [None]
